FAERS Safety Report 14030275 (Version 1)
Quarter: 2017Q4

REPORT INFORMATION
  Report Type: Spontaneous
  Country: DE (occurrence: DE)
  Receive Date: 20171002
  Receipt Date: 20171002
  Transmission Date: 20180321
  Serious: Yes (Other)
  Sender: FDA-Public Use
  Company Number: DE-MYLANLABS-2017M1060086

PATIENT
  Age: 28 Year
  Sex: Female
  Weight: 72 kg

DRUGS (5)
  1. CEFUROXIM [Concomitant]
     Active Substance: CEFUROXIME
     Indication: URINARY TRACT OBSTRUCTION
     Route: 048
     Dates: start: 20170215, end: 20170224
  2. ESCITALOPRAM [Suspect]
     Active Substance: ESCITALOPRAM OXALATE
     Indication: DEPRESSION
     Dosage: 15 [MG/D ]
     Route: 048
     Dates: start: 20160827
  3. SALBUTAMOL [Concomitant]
     Active Substance: ALBUTEROL
     Indication: HYPERSENSITIVITY
     Dosage: IF REQUIRED
     Route: 055
  4. KADEFUNGIN [Concomitant]
     Active Substance: CLOTRIMAZOLE
     Indication: VULVOVAGINAL MYCOTIC INFECTION
     Route: 067
  5. FOLSAEURE [Concomitant]
     Active Substance: FOLIC ACID
     Indication: PROPHYLAXIS OF NEURAL TUBE DEFECT
     Route: 048

REACTIONS (2)
  - Foetal death [Recovered/Resolved]
  - Exposure during pregnancy [Recovered/Resolved]
